FAERS Safety Report 12847129 (Version 2)
Quarter: 2016Q4

REPORT INFORMATION
  Report Type: Spontaneous
  Country: JP (occurrence: JP)
  Receive Date: 20161014
  Receipt Date: 20161114
  Transmission Date: 20170207
  Serious: Yes (Death, Other)
  Sender: FDA-Public Use
  Company Number: JP-ELI_LILLY_AND_COMPANY-JP201605010508

PATIENT
  Sex: Male

DRUGS (7)
  1. 5 FU [Concomitant]
     Active Substance: FLUOROURACIL
     Dosage: 500 MG, UNKNOWN
     Route: 042
     Dates: start: 20150516
  2. CDDP [Concomitant]
     Active Substance: CISPLATIN
     Indication: GINGIVAL CANCER
     Dosage: 130 MG, UNKNOWN
     Route: 042
     Dates: start: 20160225
  3. CDDP [Concomitant]
     Active Substance: CISPLATIN
     Dosage: 50 MG, UNKNOWN
     Route: 042
     Dates: start: 20160406
  4. ERBITUX [Suspect]
     Active Substance: CETUXIMAB
     Indication: GINGIVAL CANCER
     Dosage: UNK UNK, UNKNOWN
     Route: 042
  5. 5 FU [Concomitant]
     Active Substance: FLUOROURACIL
     Dosage: 500 MG, UNKNOWN
     Route: 042
     Dates: start: 20160406
  6. CDDP [Concomitant]
     Active Substance: CISPLATIN
     Dosage: 50 MG, UNKNOWN
     Route: 042
     Dates: start: 20160516
  7. 5 FU [Concomitant]
     Active Substance: FLUOROURACIL
     Indication: GINGIVAL CANCER
     Dosage: 1300 MG, UNKNOWN
     Route: 042
     Dates: start: 20160225

REACTIONS (3)
  - Death [Fatal]
  - Cerebral infarction [Unknown]
  - Interstitial lung disease [Recovered/Resolved with Sequelae]

NARRATIVE: CASE EVENT DATE: 20160518
